FAERS Safety Report 9621232 (Version 1)
Quarter: 2013Q4

REPORT INFORMATION
  Report Type: Spontaneous
  Country: US (occurrence: None)
  Receive Date: 20131011
  Receipt Date: 20131011
  Transmission Date: 20140711
  Serious: No
  Sender: FDA-Public Use
  Company Number: None

PATIENT
  Sex: Male
  Weight: 77.11 kg

DRUGS (22)
  1. PRADAXA [Suspect]
     Indication: ANTICOAGULANT THERAPY
     Route: 048
     Dates: start: 201002, end: 20130822
  2. PRADAXA [Suspect]
     Indication: ATRIAL FIBRILLATION
     Route: 048
     Dates: start: 201002, end: 20130822
  3. ELIQUIS [Concomitant]
  4. ISDN [Concomitant]
  5. OMEPRAZOLE [Concomitant]
  6. METFORMIN [Concomitant]
  7. VISION FORMULA [Concomitant]
  8. FISH OIL [Concomitant]
  9. NEUROTIN [Concomitant]
  10. PRAVASTATIN [Concomitant]
  11. TRAMADOL [Concomitant]
  12. AMBIEN [Concomitant]
  13. LD ASA [Concomitant]
  14. AMLODIPINE [Concomitant]
  15. HCTZ/TRIAMTERENE [Concomitant]
  16. DIGOXIN [Concomitant]
  17. D3 [Concomitant]
  18. METOPROLOL TARTRATE [Concomitant]
  19. NTG [Concomitant]
  20. MECLIZINE [Concomitant]
  21. MOBIC [Concomitant]
  22. MULTAQ [Concomitant]

REACTIONS (3)
  - Cerebrovascular accident [None]
  - Hemiparesis [None]
  - Dysarthria [None]
